FAERS Safety Report 15761449 (Version 1)
Quarter: 2018Q4

REPORT INFORMATION
  Report Type: Spontaneous
  Country: US (occurrence: US)
  Receive Date: 20181226
  Receipt Date: 20181226
  Transmission Date: 20190205
  Serious: Yes (Other)
  Sender: FDA-Public Use
  Company Number: US-MYLANLABS-2018M1093356

PATIENT
  Sex: Male
  Weight: 64 kg

DRUGS (3)
  1. KEPPRA [Concomitant]
     Active Substance: LEVETIRACETAM
     Dosage: 250 MILLIGRAM, TID
  2. GABAPENTIN. [Concomitant]
     Active Substance: GABAPENTIN
     Dosage: 100 MILLIGRAM
  3. ZONISAMIDE CAPSULES, USP [Suspect]
     Active Substance: ZONISAMIDE
     Indication: EPILEPSY
     Dosage: 50 MILLIGRAM
     Route: 048

REACTIONS (4)
  - Drug hypersensitivity [Not Recovered/Not Resolved]
  - Alcohol abuse [Not Recovered/Not Resolved]
  - Product solubility abnormal [Recovered/Resolved]
  - Seizure [Not Recovered/Not Resolved]
